FAERS Safety Report 5354796-5 (Version None)
Quarter: 2007Q2

REPORT INFORMATION
  Report Type: 
  Country: None (occurrence: None)
  Receive Date: 20070611
  Receipt Date: 20070604
  Transmission Date: 20071010
  Serious: Yes (Hospitalization)
  Sender: FDA-Public Use
  Company Number: 2007AL002214

PATIENT
  Age: 58 Year
  Sex: Female
  Weight: 54 kg

DRUGS (5)
  1. DIGOXIN [Suspect]
     Indication: PALPITATIONS
     Dosage: 0.25 MG; QD; PO
     Route: 048
  2. HYDROCHLOROTHIAZIDE [Concomitant]
  3. FOSINOPRIL SODIUM [Concomitant]
  4. PROGESTERONE [Concomitant]
  5. PAROXETINE [Concomitant]

REACTIONS (15)
  - ATRIAL FIBRILLATION [None]
  - BLOOD CREATINE PHOSPHOKINASE MB INCREASED [None]
  - BLOOD CREATININE INCREASED [None]
  - BLOOD MAGNESIUM DECREASED [None]
  - BLOOD PRESSURE INCREASED [None]
  - BLOOD SODIUM DECREASED [None]
  - BRONCHITIS [None]
  - ELECTROCARDIOGRAM ABNORMAL [None]
  - ORTHOSTATIC HYPOTENSION [None]
  - SYNCOPE [None]
  - TACHYARRHYTHMIA [None]
  - TACHYCARDIA [None]
  - THERAPEUTIC AGENT TOXICITY [None]
  - TROPONIN I INCREASED [None]
  - UNEVALUABLE EVENT [None]
